FAERS Safety Report 9311399 (Version 2)
Quarter: 2014Q1

REPORT INFORMATION
  Report Type: Spontaneous
  Country: US (occurrence: US)
  Receive Date: 20130528
  Receipt Date: 20140131
  Transmission Date: 20141002
  Serious: Yes (Other)
  Sender: FDA-Public Use
  Company Number: US-BAYER-2013-064916

PATIENT
  Age: 35 Year
  Sex: Female

DRUGS (4)
  1. YAZ [Suspect]
     Dosage: UNK
     Dates: start: 200001, end: 201001
  2. YASMIN [Suspect]
     Dosage: UNK
     Dates: start: 200001, end: 201001
  3. OCELLA [Suspect]
     Dosage: UNK
     Dates: start: 200001, end: 201001
  4. GIANVI [Suspect]
     Dosage: UNK
     Dates: start: 200001, end: 201001

REACTIONS (11)
  - Pulmonary embolism [None]
  - Myocardial infarction [None]
  - Cerebrovascular accident [None]
  - Deep vein thrombosis [None]
  - Gallbladder disorder [None]
  - Cholecystitis chronic [None]
  - Pain [None]
  - Injury [None]
  - Anxiety [None]
  - Anhedonia [None]
  - Fear of disease [None]
